FAERS Safety Report 16973559 (Version 2)
Quarter: 2019Q4

REPORT INFORMATION
  Report Type: Spontaneous
  Country: IE (occurrence: IE)
  Receive Date: 20191030
  Receipt Date: 20191129
  Transmission Date: 20200122
  Serious: Yes (Hospitalization, Other)
  Sender: FDA-Public Use
  Company Number: IE-EMD SERONO-E2B_90071773

PATIENT
  Age: 41 Year
  Sex: Female
  Weight: 60 kg

DRUGS (5)
  1. GONASI HP [Concomitant]
     Active Substance: GONADOTROPHIN, CHORIONIC
     Indication: OVULATION INDUCTION
     Dates: start: 20190925, end: 20190925
  2. GONAL-F [Suspect]
     Active Substance: FOLLITROPIN
     Indication: CONTROLLED OVARIAN STIMULATION
     Dosage: POWDER AND SOLVENT FOR SOLUTION FOR INJECTION
     Route: 058
     Dates: start: 20190914, end: 20190925
  3. NORETHISTERONE [Concomitant]
     Active Substance: NORETHINDRONE
     Indication: MENSTRUAL CYCLE MANAGEMENT
     Dates: start: 20190827, end: 20190910
  4. CETROTIDE [Concomitant]
     Active Substance: CETRORELIX ACETATE
     Indication: PREVENTION OF PREMATURE OVULATION
     Dosage: POWDER AND SOLVENT FOR SOLUTION FOR INJECTION
     Dates: start: 20190918
  5. CABERGOLINE. [Concomitant]
     Active Substance: CABERGOLINE
     Indication: OVARIAN HYPERSTIMULATION SYNDROME
     Dates: start: 20190928, end: 20191003

REACTIONS (5)
  - Malaise [Recovered/Resolved]
  - Syncope [Recovered/Resolved]
  - Pelvic fluid collection [Recovered/Resolved]
  - Ovarian hyperstimulation syndrome [Recovered/Resolved]
  - Ovarian enlargement [Recovered/Resolved]

NARRATIVE: CASE EVENT DATE: 20190927
